FAERS Safety Report 13858661 (Version 1)
Quarter: 2017Q3

REPORT INFORMATION
  Report Type: Spontaneous
  Country: US (occurrence: US)
  Receive Date: 20170811
  Receipt Date: 20170811
  Transmission Date: 20171127
  Serious: No
  Sender: FDA-Public Use
  Company Number: US-PERRIGO-16US019065

PATIENT
  Age: 62 Year
  Sex: Female
  Weight: 54.42 kg

DRUGS (1)
  1. LORATADINE. [Suspect]
     Active Substance: LORATADINE
     Indication: DERMATITIS CONTACT
     Dosage: 10 MG, SINGLE
     Route: 048
     Dates: start: 20160809, end: 20160809

REACTIONS (1)
  - Off label use [Recovered/Resolved]

NARRATIVE: CASE EVENT DATE: 20160809
